FAERS Safety Report 6473353-0 (Version None)
Quarter: 2009Q4

REPORT INFORMATION
  Report Type: 
  Country: None (occurrence: None)
  Receive Date: 20091204
  Receipt Date: 20080626
  Transmission Date: 20100525
  Serious: Yes (Hospitalization, Other)
  Sender: FDA-Public Use
  Company Number: US-ELI_LILLY_AND_COMPANY-US200805004037

PATIENT
  Sex: Male

DRUGS (18)
  1. HUMALOG [Suspect]
     Dosage: 6 U, 3/D WITH MEALS
     Route: 058
  2. HYDRALAZINE HCL [Concomitant]
     Dosage: 5 MG, 3/D
  3. SPIRONOLACTONE [Concomitant]
     Dosage: 25 MG, 2/D
  4. PLAVIX [Concomitant]
     Dosage: 75 MG, DAILY (1/D)
  5. CARAFATE [Concomitant]
     Dosage: 1 G, 2/D
  6. ASPIRIN [Concomitant]
     Dosage: 81 MG, DAILY (1/D)
  7. KLOR-CON [Concomitant]
     Dosage: 20 MEQ, 2/D
  8. FUROSEMIDE [Concomitant]
     Dosage: 80 MG, 2/D
  9. DIOVAN [Concomitant]
     Dosage: UNK, DAILY (1/D)
  10. NITROGLYCERIN [Concomitant]
     Dosage: 0.6 UNK, EVERY HOUR
     Route: 062
  11. LANTUS [Concomitant]
     Dosage: 100 U, 2/D
     Route: 058
  12. ALLOPURINOL [Concomitant]
     Dosage: 100 MG, DAILY (1/D)
  13. NORVASC [Concomitant]
     Dosage: 10 MG, DAILY (1/D)
  14. ZOCOR [Concomitant]
     Dosage: 40 MG, DAILY (1/D)
  15. HALDOL [Concomitant]
  16. XANAX [Concomitant]
     Dosage: 1 MG, 3/D
  17. METOCLOPRAMIDE [Concomitant]
     Dosage: 10 MG, 4/D
  18. METOLAZONE [Concomitant]

REACTIONS (20)
  - AGITATION [None]
  - ANXIETY [None]
  - BLOOD CREATININE INCREASED [None]
  - BLOOD GLUCOSE INCREASED [None]
  - BLOOD PRESSURE INCREASED [None]
  - BLOOD UREA INCREASED [None]
  - BREATH SOUNDS ABNORMAL [None]
  - BUNDLE BRANCH BLOCK RIGHT [None]
  - CHEST PAIN [None]
  - COUGH [None]
  - DEMENTIA [None]
  - DRUG HYPERSENSITIVITY [None]
  - DYSPNOEA [None]
  - HAEMOGLOBIN DECREASED [None]
  - PRODUCT QUALITY ISSUE [None]
  - RENAL FAILURE ACUTE [None]
  - RESPIRATORY DISTRESS [None]
  - SINUS TACHYCARDIA [None]
  - TRANSIENT ISCHAEMIC ATTACK [None]
  - WHEEZING [None]
